FAERS Safety Report 9638934 (Version 1)
Quarter: 2013Q4

REPORT INFORMATION
  Report Type: Spontaneous
  Country: US (occurrence: US)
  Receive Date: 20131022
  Receipt Date: 20131022
  Transmission Date: 20140711
  Serious: No
  Sender: FDA-Public Use
  Company Number: US-BRISTOL-MYERS SQUIBB COMPANY-19064435

PATIENT
  Sex: Male

DRUGS (2)
  1. ELIQUIS [Suspect]
     Dosage: 5MG-CUT TO HALF(2.5MG/D)
  2. LASIX [Concomitant]

REACTIONS (2)
  - Hypotension [Unknown]
  - Drug administration error [Unknown]
